FAERS Safety Report 16223381 (Version 1)
Quarter: 2019Q2

REPORT INFORMATION
  Report Type: Spontaneous
  Country: US (occurrence: US)
  Receive Date: 20190420
  Receipt Date: 20190420
  Transmission Date: 20190711
  Serious: Yes (Disabling)
  Sender: FDA-Public Use
  Company Number: None

PATIENT
  Age: 59 Year
  Sex: Female
  Weight: 65.25 kg

DRUGS (4)
  1. VIT. D3 [Concomitant]
  2. KLONOPIN [Suspect]
     Active Substance: CLONAZEPAM
     Indication: ANXIETY
     Dosage: ?          QUANTITY:30 TABLET(S);OTHER FREQUENCY:TAPER AS DISCUSSED;?
     Route: 048
     Dates: start: 20160205
  3. LEVOTHYROXINE. [Concomitant]
     Active Substance: LEVOTHYROXINE
  4. K2 [Concomitant]
     Active Substance: JWH-018

REACTIONS (18)
  - Muscle spasms [None]
  - Hyperhidrosis [None]
  - Decreased activity [None]
  - Dizziness [None]
  - Tinnitus [None]
  - Depersonalisation/derealisation disorder [None]
  - Insomnia [None]
  - Tremor [None]
  - Withdrawal syndrome [None]
  - Drug dependence [None]
  - Migraine [None]
  - Weight decreased [None]
  - Quality of life decreased [None]
  - Anxiety [None]
  - Abdominal discomfort [None]
  - Food allergy [None]
  - Malaise [None]
  - Bedridden [None]
